FAERS Safety Report 8247698-8 (Version None)
Quarter: 2012Q1

REPORT INFORMATION
  Report Type: 
  Country: None (occurrence: None)
  Receive Date: 20120330
  Receipt Date: 20120322
  Transmission Date: 20120608
  Serious: Yes (Other)
  Sender: FDA-Public Use
  Company Number: US-GLAXOSMITHKLINE-A0897804A

PATIENT
  Age: 38 Year
  Sex: Female

DRUGS (3)
  1. AMBIEN [Concomitant]
  2. NIASPAN [Concomitant]
  3. AVANDIA [Suspect]
     Indication: TYPE 2 DIABETES MELLITUS
     Dosage: 4MG PER DAY
     Route: 048
     Dates: start: 20080801, end: 20100101

REACTIONS (4)
  - ARTERIOSCLEROSIS [None]
  - MYOCARDIAL ISCHAEMIA [None]
  - TRANSIENT ISCHAEMIC ATTACK [None]
  - CEREBROVASCULAR ACCIDENT [None]
